FAERS Safety Report 10596113 (Version 5)
Quarter: 2015Q3

REPORT INFORMATION
  Report Type: Spontaneous
  Country: US (occurrence: US)
  Receive Date: 20141120
  Receipt Date: 20150909
  Transmission Date: 20151125
  Serious: No
  Sender: FDA-Public Use
  Company Number: US-GLAXOSMITHKLINE-A1080881A

PATIENT

DRUGS (12)
  1. ENALAPRIL [Concomitant]
     Active Substance: ENALAPRIL
  2. ZETIA [Concomitant]
     Active Substance: EZETIMIBE
  3. LANTUS [Concomitant]
     Active Substance: INSULIN GLARGINE
  4. LOTEMAX [Concomitant]
     Active Substance: LOTEPREDNOL ETABONATE
  5. LAMOTRIGINE. [Suspect]
     Active Substance: LAMOTRIGINE
     Indication: EPILEPSY
  6. CARBAMAZEPINE. [Concomitant]
     Active Substance: CARBAMAZEPINE
  7. HUMALOG [Concomitant]
     Active Substance: INSULIN LISPRO
  8. AMLODIPINE [Concomitant]
     Active Substance: AMLODIPINE BESYLATE
  9. LAMICTAL [Suspect]
     Active Substance: LAMOTRIGINE
     Indication: SEIZURE
     Dosage: 150 MG, BID
     Route: 048
     Dates: start: 2011, end: 2012
  10. BABY ASPIRIN [Concomitant]
     Active Substance: ASPIRIN
  11. HYDRALAZINE [Concomitant]
     Active Substance: HYDRALAZINE HYDROCHLORIDE
  12. LAMOTRIGINE. [Suspect]
     Active Substance: LAMOTRIGINE
     Indication: SEIZURE
     Dosage: 150 MG, BID
     Route: 048
     Dates: start: 2012

REACTIONS (5)
  - Frustration [Unknown]
  - Depression [Unknown]
  - Hypertrichosis [Not Recovered/Not Resolved]
  - Hair growth abnormal [Unknown]
  - Hirsutism [Unknown]

NARRATIVE: CASE EVENT DATE: 2011
